FAERS Safety Report 12755719 (Version 2)
Quarter: 2016Q3

REPORT INFORMATION
  Report Type: Report from Study
  Country: ES (occurrence: ES)
  Receive Date: 20160916
  Receipt Date: 20160919
  Transmission Date: 20161109
  Serious: Yes (Other)
  Sender: FDA-Public Use
  Company Number: ES-BAXTER-2016BAX046849

PATIENT
  Age: 66 Year

DRUGS (18)
  1. GENOXAL [Suspect]
     Active Substance: CYCLOPHOSPHAMIDE
     Dosage: TREATMENT VISIT 3, DOSE DELAYED DUE TO HEMATOLOGIC TOXICITY
     Route: 065
     Dates: start: 20110712, end: 20110714
  2. RITUXIMAB [Suspect]
     Active Substance: RITUXIMAB
     Dosage: TREATMENT VISIT 6, DOSE DELAYED DUE TO HEMATOLOGIC TOXICITY
     Route: 065
     Dates: start: 20111121, end: 20111123
  3. FLUDARABINE [Suspect]
     Active Substance: FLUDARABINE PHOSPHATE
     Dosage: TREATMENT VISIT 3, DOSE DELAYED DUE TO HEMATOLOGIC TOXICITY
     Route: 065
     Dates: start: 20110712, end: 20110714
  4. FLUDARABINE [Suspect]
     Active Substance: FLUDARABINE PHOSPHATE
     Indication: CHRONIC LYMPHOCYTIC LEUKAEMIA
     Dosage: TREATMENT VISIT 1
     Route: 065
     Dates: start: 20110510, end: 20110512
  5. FLUDARABINE [Suspect]
     Active Substance: FLUDARABINE PHOSPHATE
     Dosage: TREATMENT VISIT 5, DOSE DELAYED AND REDUCED DUE TO HEMATOLOGIC TOXICITY
     Route: 065
     Dates: start: 20111004, end: 20111006
  6. RITUXIMAB [Suspect]
     Active Substance: RITUXIMAB
     Dosage: TREATMENT VISIT 2, DOSE DELAYED DUE TO HEMATOLOGIC TOXICITY
     Route: 065
     Dates: start: 20110615, end: 20110617
  7. RITUXIMAB [Suspect]
     Active Substance: RITUXIMAB
     Indication: CHRONIC LYMPHOCYTIC LEUKAEMIA
     Dosage: TREATMENT VISIT 1
     Route: 065
     Dates: start: 20110510, end: 20110512
  8. RITUXIMAB [Suspect]
     Active Substance: RITUXIMAB
     Dosage: TREATMENT VISIT 3, DOSE DELAYED DUE TO HEMATOLOGIC TOXICITY
     Route: 065
     Dates: start: 20110712, end: 20110714
  9. RITUXIMAB [Suspect]
     Active Substance: RITUXIMAB
     Dosage: TREATMENT VISIT 4, DOSE DELAYED DUE TO HEMATOLOGIC TOXICITY
     Route: 065
     Dates: start: 20110824, end: 20110826
  10. FLUDARABINE [Suspect]
     Active Substance: FLUDARABINE PHOSPHATE
     Dosage: TREATMENT VISIT 2, DOSE DELAYED DUE TO HEMATOLOGIC TOXICITY
     Route: 065
     Dates: start: 20110615, end: 20110617
  11. FLUDARABINE [Suspect]
     Active Substance: FLUDARABINE PHOSPHATE
     Dosage: TREATMENT VISIT 6, DOSE DELAYED AND REDUCED DUE TO HEMATOLOGIC TOXICITY
     Route: 065
     Dates: start: 20111121, end: 20111123
  12. GENOXAL [Suspect]
     Active Substance: CYCLOPHOSPHAMIDE
     Indication: CHRONIC LYMPHOCYTIC LEUKAEMIA
     Dosage: TREATMENT VISIT 1
     Route: 065
     Dates: start: 20110510, end: 20110512
  13. GENOXAL [Suspect]
     Active Substance: CYCLOPHOSPHAMIDE
     Dosage: TREATMENT VISIT 2, DOSE DELAYED DUE TO HEMATOLOGIC TOXICITY
     Route: 065
     Dates: start: 20110615, end: 20110617
  14. GENOXAL [Suspect]
     Active Substance: CYCLOPHOSPHAMIDE
     Dosage: TREATMENT VISIT 5, DOSE DELAYED AND REDUCED DUE TO HEMATOLOGIC TOXICITY
     Route: 065
     Dates: start: 20111004, end: 20111006
  15. GENOXAL [Suspect]
     Active Substance: CYCLOPHOSPHAMIDE
     Dosage: TREATMENT VISIT 6, DOSE DELAYED AND REDUCED DUE TO HEMATOLOGIC TOXICITY
     Route: 065
     Dates: start: 20111121, end: 20111123
  16. RITUXIMAB [Suspect]
     Active Substance: RITUXIMAB
     Dosage: TREATMENT VISIT 5, DOSE DELAYED DUE TO HEMATOLOGIC TOXICITY
     Route: 065
     Dates: start: 20111004, end: 20111006
  17. FLUDARABINE [Suspect]
     Active Substance: FLUDARABINE PHOSPHATE
     Dosage: TREATMENT VISIT 4, DOSE DELAYED DUE TO HEMATOLOGIC TOXICITY
     Route: 065
     Dates: start: 20110824, end: 20110826
  18. GENOXAL [Suspect]
     Active Substance: CYCLOPHOSPHAMIDE
     Dosage: TREATMENT VISIT 4, DOSE DELAYED DUE TO HEMATOLOGIC TOXICITY
     Route: 065
     Dates: start: 20110824, end: 20110826

REACTIONS (4)
  - Cough [Recovered/Resolved]
  - Pyrexia [Recovered/Resolved]
  - Haematotoxicity [Unknown]
  - Upper respiratory tract infection [Recovered/Resolved]

NARRATIVE: CASE EVENT DATE: 20110615
